FAERS Safety Report 11591469 (Version 1)
Quarter: 2015Q4

REPORT INFORMATION
  Report Type: Spontaneous
  Country: CA (occurrence: CA)
  Receive Date: 20151005
  Receipt Date: 20151005
  Transmission Date: 20160304
  Serious: No
  Sender: FDA-Public Use
  Company Number: CA-NOVEN PHARMACEUTICALS, INC.-14CA010439

PATIENT
  Sex: Female

DRUGS (1)
  1. ESTRADIOL/NORETHINDRONE ACETATE [Suspect]
     Active Substance: ESTRADIOL\NORETHINDRONE ACETATE
     Indication: MENOPAUSAL SYMPTOMS
     Dosage: 50UG/140UG/DAY, UNK
     Route: 062

REACTIONS (1)
  - Application site irritation [Unknown]
